FAERS Safety Report 15998846 (Version 1)
Quarter: 2019Q1

REPORT INFORMATION
  Report Type: Report from Study
  Country: US (occurrence: US)
  Receive Date: 20190223
  Receipt Date: 20190223
  Transmission Date: 20190418
  Serious: Yes (Hospitalization)
  Sender: FDA-Public Use
  Company Number: US-TEVA-2019-US-1013621

PATIENT
  Age: 21 Year
  Sex: Male
  Weight: 55 kg

DRUGS (11)
  1. METHOTREXATE. [Suspect]
     Active Substance: METHOTREXATE
     Dosage: ONCE
     Route: 037
     Dates: start: 20190110
  2. MERCAPTOPURINE. [Suspect]
     Active Substance: MERCAPTOPURINE
     Indication: ACUTE LYMPHOCYTIC LEUKAEMIA
     Dosage: 100 MILLIGRAM DAILY;
     Route: 048
     Dates: start: 20181220
  3. METHOTREXATE. [Suspect]
     Active Substance: METHOTREXATE
     Dosage: ONCE
     Route: 037
     Dates: start: 20190103
  4. CYTARABINE. [Suspect]
     Active Substance: CYTARABINE
     Indication: ACUTE LYMPHOCYTIC LEUKAEMIA
     Dosage: 120 MILLIGRAM DAILY;
     Route: 042
     Dates: start: 20181220, end: 20181223
  5. VINCRISTINE [Suspect]
     Active Substance: VINCRISTINE
     Indication: ACUTE LYMPHOCYTIC LEUKAEMIA
     Dosage: ONCE
     Route: 042
     Dates: start: 20190103
  6. PEGASPARGASE [Suspect]
     Active Substance: PEGASPARGASE
     Indication: ACUTE LYMPHOCYTIC LEUKAEMIA
     Dosage: ONCE
     Route: 042
  7. METHOTREXATE. [Suspect]
     Active Substance: METHOTREXATE
     Indication: ACUTE LYMPHOCYTIC LEUKAEMIA
     Dosage: ONCE
     Route: 037
     Dates: start: 20181220
  8. VINCRISTINE [Suspect]
     Active Substance: VINCRISTINE
     Dosage: ONCE
     Route: 042
     Dates: start: 20190110
  9. CYTARABINE. [Suspect]
     Active Substance: CYTARABINE
     Dosage: 120 MILLIGRAM DAILY;
     Route: 042
     Dates: start: 20181227
  10. METHOTREXATE. [Suspect]
     Active Substance: METHOTREXATE
     Dosage: ONCE
     Route: 037
     Dates: start: 20181227
  11. CYCLOPHOSPHAMIDE. [Suspect]
     Active Substance: CYCLOPHOSPHAMIDE
     Indication: ACUTE LYMPHOCYTIC LEUKAEMIA
     Dosage: ONCE
     Route: 042
     Dates: start: 20181220

REACTIONS (3)
  - Chills [Recovered/Resolved]
  - Nausea [Unknown]
  - Neutropenia [Recovered/Resolved]

NARRATIVE: CASE EVENT DATE: 20190118
